FAERS Safety Report 26130891 (Version 1)
Quarter: 2025Q4

REPORT INFORMATION
  Report Type: Other
  Country: AI (occurrence: AI)
  Receive Date: 20251208
  Receipt Date: 20251208
  Transmission Date: 20260118
  Serious: Yes (Other)
  Sender: PRASCO
  Company Number: AI-Prasco Laboratories-PRAS20250396

PATIENT
  Age: 48 Year
  Sex: Female

DRUGS (1)
  1. NITROGLYCERIN [Suspect]
     Active Substance: NITROGLYCERIN
     Indication: Chest pain
     Route: 022

REACTIONS (3)
  - Circulatory collapse [Recovered/Resolved]
  - Myocardial bridging [Recovered/Resolved]
  - Condition aggravated [Recovered/Resolved]
